FAERS Safety Report 4954618-8 (Version None)
Quarter: 2006Q1

REPORT INFORMATION
  Report Type: 
  Country: None (occurrence: None)
  Receive Date: 20060327
  Receipt Date: 20060317
  Transmission Date: 20060701
  Serious: Yes (Other)
  Sender: FDA-Public Use
  Company Number: DE-ROCHE-441169

PATIENT
  Age: 68 Year
  Sex: Female

DRUGS (7)
  1. BONVIVA [Suspect]
     Indication: DRUG USE FOR UNKNOWN INDICATION
     Route: 048
     Dates: start: 20060202, end: 20060302
  2. FORADIL [Concomitant]
  3. BRONCHORETARD [Concomitant]
  4. CALCIMAGON-D3 [Concomitant]
  5. ISOMONIT [Concomitant]
     Dosage: DRUG REPORTED AS ISOMONIT 50
  6. ALLOPURINOL [Concomitant]
     Dosage: DRUG REPORTED AS ALLOPURINOL 100
  7. RANTUDIL [Concomitant]

REACTIONS (3)
  - JOINT SWELLING [None]
  - MONOPLEGIA [None]
  - PARALYSIS [None]
